FAERS Safety Report 17936236 (Version 1)
Quarter: 2020Q2

REPORT INFORMATION
  Report Type: Spontaneous
  Country: US (occurrence: US)
  Receive Date: 20200624
  Receipt Date: 20200624
  Transmission Date: 20200714
  Serious: No
  Sender: FDA-Public Use
  Company Number: US-MYLANLABS-2020M1056581

PATIENT
  Age: 24 Year
  Sex: Male
  Weight: 82 kg

DRUGS (2)
  1. LIDOCAINE PATCH [Suspect]
     Active Substance: LIDOCAINE
     Indication: RIB FRACTURE
     Dosage: 5 PERCENT
     Route: 003
     Dates: start: 20200605, end: 202006
  2. LIDOCAINE PATCH [Suspect]
     Active Substance: LIDOCAINE
     Indication: PAIN

REACTIONS (3)
  - Product quality issue [Not Recovered/Not Resolved]
  - Drug ineffective for unapproved indication [Unknown]
  - Product adhesion issue [Not Recovered/Not Resolved]

NARRATIVE: CASE EVENT DATE: 202006
